FAERS Safety Report 11687640 (Version 1)
Quarter: 2015Q4

REPORT INFORMATION
  Report Type: Spontaneous
  Country: AU (occurrence: AU)
  Receive Date: 20151030
  Receipt Date: 20151030
  Transmission Date: 20160304
  Serious: Yes (Other)
  Sender: FDA-Public Use
  Company Number: AU-PFIZER INC-2015310368

PATIENT
  Sex: Female

DRUGS (1)
  1. SERTRALINE HCL [Suspect]
     Active Substance: SERTRALINE HYDROCHLORIDE
     Dosage: UNK

REACTIONS (6)
  - Personality disorder [Unknown]
  - Mental disorder [Unknown]
  - Depressed mood [Unknown]
  - Drug ineffective [Unknown]
  - Suicidal ideation [Unknown]
  - Emotional disorder [Unknown]
